FAERS Safety Report 22612049 (Version 4)
Quarter: 2023Q4

REPORT INFORMATION
  Report Type: Spontaneous
  Country: US (occurrence: US)
  Receive Date: 20230617
  Receipt Date: 20231220
  Transmission Date: 20240109
  Serious: Yes (Hospitalization, Other)
  Sender: FDA-Public Use
  Company Number: US-AUROBINDO-AUR-APL-2023-042541

PATIENT
  Age: 25 Year
  Sex: Male

DRUGS (1)
  1. CLOZAPINE [Suspect]
     Active Substance: CLOZAPINE
     Indication: Product used for unknown indication
     Dosage: UNK
     Route: 048

REACTIONS (8)
  - Toxicity to various agents [Unknown]
  - Agranulocytosis [Unknown]
  - General physical health deterioration [Unknown]
  - Investigation abnormal [Unknown]
  - Product dispensing error [Unknown]
  - Product dispensing issue [Unknown]
  - Product physical issue [Unknown]
  - Product supply issue [Unknown]

NARRATIVE: CASE EVENT DATE: 20230227
